FAERS Safety Report 24733453 (Version 2)
Quarter: 2024Q4

REPORT INFORMATION
  Report Type: Spontaneous
  Country: US (occurrence: US)
  Receive Date: 20241213
  Receipt Date: 20241213
  Transmission Date: 20250114
  Serious: No
  Sender: MERCK
  Company Number: US-009507513-2411USA005989

PATIENT
  Age: 75 Year
  Sex: Female

DRUGS (18)
  1. JANUVIA [Suspect]
     Active Substance: SITAGLIPTIN PHOSPHATE
     Indication: Type 2 diabetes mellitus
     Dosage: 50MG DAILY (REPORTS CUTTING 100MG SAMPLE PILLS IN HALF)
     Route: 048
     Dates: start: 20241107
  2. TRULICITY [Suspect]
     Active Substance: DULAGLUTIDE
     Indication: Type 2 diabetes mellitus
     Dosage: STRENGHT 3MG/0.5ML ONCE A WEEK ON SUNDAYS SUBCUTANEOUS
     Route: 058
     Dates: start: 2023
  3. GLIPIZIDE [Suspect]
     Active Substance: GLIPIZIDE
     Indication: Type 2 diabetes mellitus
     Dosage: 5 MILLIGRAM, BID
     Route: 048
     Dates: start: 2011, end: 202411
  4. GLIPIZIDE [Suspect]
     Active Substance: GLIPIZIDE
     Dosage: 7.5 MILLIGRAM, BID
     Route: 048
     Dates: start: 20241107
  5. LISINOPRIL [Concomitant]
     Active Substance: LISINOPRIL
     Dosage: 5MG TWICE DAILY
  6. METOPROLOL TARTRATE [Concomitant]
     Active Substance: METOPROLOL TARTRATE
     Dosage: 25MG TWICE DAILY
  7. GABAPENTIN [Concomitant]
     Active Substance: GABAPENTIN
     Dosage: 300MG AT 07:00, 900MG AT 14:00, AND 900 HS
  8. ESCITALOPRAM [Concomitant]
     Active Substance: ESCITALOPRAM OXALATE
     Dosage: 20MG EVERY MORNING
  9. ALPHA LIPOIC ACID [Concomitant]
     Active Substance: .ALPHA.-LIPOIC ACID
     Dosage: 600MG AT 7AM
  10. METHYLCOLAMIN [Concomitant]
     Dosage: 10000MCG AT 7AM
  11. ZYRTEC [Concomitant]
     Active Substance: CETIRIZINE HYDROCHLORIDE
     Dosage: 10MG EVERY MORNING
  12. ESTRADIOL [Concomitant]
     Active Substance: ESTRADIOL
     Dosage: 1MG EVERY MORNING
  13. MEDROXYPROGESTERONE [Concomitant]
     Active Substance: MEDROXYPROGESTERONE
     Dosage: 2.5MG EVERY AM
  14. FAMOTIDINE [Concomitant]
     Active Substance: FAMOTIDINE
     Dosage: 40MG AT 18:30
  15. TRAZODONE [Concomitant]
     Active Substance: TRAZODONE HYDROCHLORIDE
     Dosage: 200 MILLIGRAM, HS
  16. ATORVASTATIN [Concomitant]
     Active Substance: ATORVASTATIN
     Dosage: 20 MILLIGRAM
  17. TRELEGY ELLIPTA [Concomitant]
     Active Substance: FLUTICASONE FUROATE\UMECLIDINIUM BROMIDE\VILANTEROL TRIFENATATE
     Dosage: 200MCG EVERY MORNING
  18. ALBUTEROL [Concomitant]
     Active Substance: ALBUTEROL
     Dosage: 2PUFFS EVERY 4-6 HOURS AND NEBULIZER

REACTIONS (4)
  - Limb operation [Unknown]
  - Multiple allergies [Unknown]
  - Seasonal allergy [Unknown]
  - Inability to afford medication [Unknown]

NARRATIVE: CASE EVENT DATE: 20241101
